FAERS Safety Report 25867412 (Version 1)
Quarter: 2025Q4

REPORT INFORMATION
  Report Type: Spontaneous
  Country: US (occurrence: US)
  Receive Date: 20251001
  Receipt Date: 20251001
  Transmission Date: 20260118
  Serious: No
  Sender: ROCHE
  Company Number: US-ROCHE-10000396630

PATIENT

DRUGS (3)
  1. ITOVEBI [Suspect]
     Active Substance: INAVOLISIB
     Indication: Breast cancer metastatic
     Route: 065
  2. PALBOCICLIB [Concomitant]
     Active Substance: PALBOCICLIB
  3. FULVESTRANT [Concomitant]
     Active Substance: FULVESTRANT

REACTIONS (1)
  - Blood glucose increased [Unknown]
